FAERS Safety Report 19658065 (Version 1)
Quarter: 2021Q3

REPORT INFORMATION
  Report Type: Spontaneous
  Country: IN (occurrence: IN)
  Receive Date: 20210804
  Receipt Date: 20210804
  Transmission Date: 20211014
  Serious: Yes (Death)
  Sender: FDA-Public Use
  Company Number: IN-PFIZER INC-2020084803

PATIENT
  Age: 69 Year
  Sex: Female

DRUGS (5)
  1. PALBACE [Suspect]
     Active Substance: PALBOCICLIB
     Indication: BREAST CANCER METASTATIC
     Dosage: 125 MG, CYCLIC (ONCE A DAY, X3 WEEKS, 7 DAYS REST)
     Route: 048
     Dates: start: 20200204, end: 20210620
  2. LETROZOL [Concomitant]
     Active Substance: LETROZOLE
     Dosage: 2.5 MG, 1X/DAY
  3. MONTAIR LC [Concomitant]
     Active Substance: LEVOCETIRIZINE DIHYDROCHLORIDE\MONTELUKAST SODIUM
     Dosage: 1 DF, 1X/DAY (AT NIGHT)
  4. UDILIV [Concomitant]
     Active Substance: URSODIOL
     Dosage: 300 MG, 1X/DAY
  5. PAN?D [Concomitant]
     Active Substance: DOMPERIDONE\PANTOPRAZOLE SODIUM
     Dosage: 1 DF, 1X/DAY

REACTIONS (11)
  - Cough [Unknown]
  - Neoplasm progression [Unknown]
  - Neutrophil count increased [Unknown]
  - Death [Fatal]
  - Hyperchlorhydria [Unknown]
  - Mean cell haemoglobin decreased [Unknown]
  - Mean cell haemoglobin concentration decreased [Unknown]
  - Headache [Unknown]
  - White blood cell count decreased [Unknown]
  - Monocyte percentage decreased [Unknown]
  - Mean cell volume increased [Unknown]

NARRATIVE: CASE EVENT DATE: 2020
